FAERS Safety Report 9637502 (Version 3)
Quarter: 2013Q4

REPORT INFORMATION
  Report Type: Spontaneous
  Country: DE (occurrence: DE)
  Receive Date: 20131022
  Receipt Date: 20131125
  Transmission Date: 20140711
  Serious: Yes (Hospitalization, Other)
  Sender: FDA-Public Use
  Company Number: DE-JNJFOC-20131011948

PATIENT
  Age: 79 Year
  Sex: Male
  Weight: 105 kg

DRUGS (6)
  1. XARELTO [Suspect]
     Indication: KNEE ARTHROPLASTY
     Route: 048
     Dates: start: 20130924
  2. XARELTO [Suspect]
     Indication: THROMBOSIS PROPHYLAXIS
     Route: 048
     Dates: start: 20130924
  3. IBUPROFEN [Concomitant]
     Route: 065
  4. SAROTEN [Concomitant]
     Route: 065
  5. PANTOZOL [Concomitant]
     Route: 065
  6. NOVALGIN [Concomitant]
     Route: 065
     Dates: start: 20131011

REACTIONS (2)
  - Cerebral haemorrhage [Unknown]
  - Fall [Unknown]
